FAERS Safety Report 11707332 (Version 1)
Quarter: 2015Q4

REPORT INFORMATION
  Report Type: Spontaneous
  Country: US (occurrence: US)
  Receive Date: 20151104
  Receipt Date: 20151104
  Transmission Date: 20160304
  Serious: No
  Sender: FDA-Public Use
  Company Number: US-ELI_LILLY_AND_COMPANY-US201102000288

PATIENT
  Age: 80 Year
  Sex: Female

DRUGS (2)
  1. FORTEO [Suspect]
     Active Substance: TERIPARATIDE
     Indication: OSTEOPOROSIS
     Dosage: 20 UG, DAILY (1/D)
     Dates: start: 20110109, end: 20110205
  2. ERGOCALCIFEROL. [Concomitant]
     Active Substance: ERGOCALCIFEROL

REACTIONS (16)
  - Pruritus [Unknown]
  - Fatigue [Unknown]
  - Intentional product misuse [Unknown]
  - Asthenia [Unknown]
  - Dizziness [Unknown]
  - Muscular weakness [Unknown]
  - Back pain [Unknown]
  - Discomfort [Unknown]
  - Insomnia [Unknown]
  - Gait disturbance [Unknown]
  - Arthralgia [Unknown]
  - Muscle spasms [Unknown]
  - Bowel movement irregularity [Unknown]
  - Constipation [Unknown]
  - Dysstasia [Unknown]
  - Pain [Unknown]

NARRATIVE: CASE EVENT DATE: 201101
